FAERS Safety Report 15110979 (Version 2)
Quarter: 2018Q3

REPORT INFORMATION
  Report Type: Spontaneous
  Country: JP (occurrence: JP)
  Receive Date: 20180705
  Receipt Date: 20180813
  Transmission Date: 20181010
  Serious: Yes (Hospitalization, Other)
  Sender: FDA-Public Use
  Company Number: JP-BRISTOL-MYERS SQUIBB COMPANY-BMS-2018-020452

PATIENT
  Age: 41 Year
  Sex: Male

DRUGS (1)
  1. OPDIVO [Suspect]
     Active Substance: NIVOLUMAB
     Indication: GASTRIC CANCER
     Dosage: 3 MG/KG, Q2WK
     Route: 041
     Dates: start: 20171116, end: 201803

REACTIONS (5)
  - Hydronephrosis [Unknown]
  - Metastases to bone [Recovering/Resolving]
  - Metastases to kidney [Not Recovered/Not Resolved]
  - Metastases to skin [Recovering/Resolving]
  - Metastases to muscle [Recovering/Resolving]

NARRATIVE: CASE EVENT DATE: 2018
